FAERS Safety Report 9529749 (Version 1)
Quarter: 2013Q3

REPORT INFORMATION
  Report Type: Report from Study
  Country: HU (occurrence: HU)
  Receive Date: 20130917
  Receipt Date: 20130917
  Transmission Date: 20140515
  Serious: Yes (Hospitalization)
  Sender: FDA-Public Use
  Company Number: HU-GLAXOSMITHKLINE-B0923003A

PATIENT
  Age: 60 Year
  Sex: Male

DRUGS (6)
  1. SERETIDE DISKUS [Suspect]
     Indication: CHRONIC OBSTRUCTIVE PULMONARY DISEASE
     Dosage: 1PUFF TWICE PER DAY
     Route: 055
  2. THEOSPIREX [Concomitant]
     Dosage: 300MG PER DAY
  3. SPIRIVA [Concomitant]
     Dosage: 18MCG PER DAY
  4. MEDROL [Concomitant]
     Dosage: 4MG PER DAY
  5. BERODUAL [Concomitant]
  6. SYNCUMAR [Concomitant]
     Dosage: 3MG PER DAY

REACTIONS (1)
  - Abdominal hernia [Recovered/Resolved]
